FAERS Safety Report 4852905-5 (Version None)
Quarter: 2005Q4

REPORT INFORMATION
  Report Type: 
  Country: None (occurrence: None)
  Receive Date: 20051212
  Receipt Date: 20051122
  Transmission Date: 20060501
  Serious: Yes (Hospitalization)
  Sender: FDA-Public Use
  Company Number: USA0506101535

PATIENT
  Age: 40 Year
  Sex: Female
  Weight: 103.9 kg

DRUGS (1)
  1. CYMBALTA [Suspect]
     Indication: STRESS
     Dosage: 30 MG
     Dates: start: 20050525, end: 20050101

REACTIONS (4)
  - ABDOMINAL PAIN [None]
  - FATIGUE [None]
  - HEPATIC ENZYME INCREASED [None]
  - PYREXIA [None]
